FAERS Safety Report 5225196-3 (Version None)
Quarter: 2007Q1

REPORT INFORMATION
  Report Type: 
  Country: None (occurrence: None)
  Receive Date: 20070131
  Receipt Date: 20070119
  Transmission Date: 20070707
  Serious: Yes (Other)
  Sender: FDA-Public Use
  Company Number: US-ROCHE-479323

PATIENT
  Age: 57 Year
  Sex: Female

DRUGS (4)
  1. PEGASYS [Suspect]
     Route: 065
     Dates: start: 20061012, end: 20061221
  2. RIBAVIRIN [Suspect]
     Route: 065
     Dates: start: 20061012, end: 20061221
  3. ZOLOFT [Concomitant]
     Indication: DEPRESSION
     Route: 048
  4. ACYCLOVIR [Concomitant]
     Route: 048

REACTIONS (5)
  - DYSPHONIA [None]
  - NAUSEA [None]
  - RASH [None]
  - RETINAL EXUDATES [None]
  - TREMOR [None]
